FAERS Safety Report 24048500 (Version 1)
Quarter: 2024Q3

REPORT INFORMATION
  Report Type: Spontaneous
  Country: US (occurrence: US)
  Receive Date: 20240704
  Receipt Date: 20240704
  Transmission Date: 20241016
  Serious: Yes (Hospitalization, Other)
  Sender: NOVITIUM PHARMA
  Company Number: US-NOVITIUMPHARMA-2024USNVP01129

PATIENT
  Age: 82 Year
  Sex: Female

DRUGS (3)
  1. PREDNISONE [Suspect]
     Active Substance: PREDNISONE
     Indication: Dermatomyositis
  2. PYRAZINAMIDE [Suspect]
     Active Substance: PYRAZINAMIDE
     Indication: Bacterial myositis
  3. ISONIAZID [Concomitant]
     Active Substance: ISONIAZID
     Indication: Bacterial myositis

REACTIONS (2)
  - Bacterial myositis [Not Recovered/Not Resolved]
  - Hepatotoxicity [Not Recovered/Not Resolved]
